FAERS Safety Report 11265601 (Version 1)
Quarter: 2015Q2

REPORT INFORMATION
  Report Type: Spontaneous
  Country: US (occurrence: None)
  Receive Date: 20150619
  Receipt Date: 20150619
  Transmission Date: 20150821
  Serious: Yes (Other)
  Sender: FDA-Public Use
  Company Number: PHEH2015US006279

PATIENT
  Age: 83 Year
  Sex: Male
  Weight: 115.4 kg

DRUGS (3)
  1. FARYDAK [Suspect]
     Active Substance: PANOBINOSTAT
     Indication: PLASMA CELL MYELOMA
     Dosage: ONCE EVERY MONDAY, WEDNESDAY, FRIDAY WITH 1 WEEK OFF
     Route: 048
     Dates: start: 20141117, end: 20141222
  2. VELCADE [Suspect]
     Active Substance: BORTEZOMIB
     Indication: PLASMA CELL MYELOMA
     Dosage: ONCE ON MONDAY, THURSDAY FOR 2 WEEKS WITH 1 WEEK OFF
     Route: 058
     Dates: start: 20141117, end: 20141222
  3. DEXAMETHASONE. [Suspect]
     Active Substance: DEXAMETHASONE
     Indication: PLASMA CELL MYELOMA
     Dosage: DAY OF VELCADE AND THE DAY AFTER VELCADE
     Route: 048
     Dates: start: 20141117, end: 20141222

REACTIONS (3)
  - Pain in extremity [None]
  - Erythema [None]
  - Cellulitis [None]

NARRATIVE: CASE EVENT DATE: 20141222
